FAERS Safety Report 6642713-7 (Version None)
Quarter: 2010Q1

REPORT INFORMATION
  Report Type: 
  Country: None (occurrence: None)
  Receive Date: 20100316
  Receipt Date: 20100309
  Transmission Date: 20100710
  Serious: Yes (Hospitalization, Other)
  Sender: FDA-Public Use
  Company Number: 2010SP014942

PATIENT
  Age: 37 Year
  Sex: Female
  Weight: 48 kg

DRUGS (10)
  1. FOLLISTIM [Suspect]
     Indication: IN VITRO FERTILISATION
     Dosage: 150 IU; IM; 150 IU; IM; 150 IU; IM
     Route: 030
     Dates: start: 20060503, end: 20060503
  2. FOLLISTIM [Suspect]
     Indication: IN VITRO FERTILISATION
     Dosage: 150 IU; IM; 150 IU; IM; 150 IU; IM
     Route: 030
     Dates: start: 20060505, end: 20060505
  3. FOLLISTIM [Suspect]
     Indication: IN VITRO FERTILISATION
     Dosage: 150 IU; IM; 150 IU; IM; 150 IU; IM
     Route: 030
     Dates: start: 20060507, end: 20060507
  4. PLANOVAR (CON.) [Concomitant]
  5. CLOMID (CON.) [Concomitant]
  6. DUPHASTON (CON.) [Concomitant]
  7. JUVELA N (CON.) [Concomitant]
  8. HCG (OTHER MFR) (CON.) [Concomitant]
  9. PROGESTERON (CON.) [Concomitant]
  10. SUPRECUR (CON.) [Concomitant]

REACTIONS (5)
  - ABORTION THREATENED [None]
  - CAESAREAN SECTION [None]
  - DRUG EXPOSURE DURING PREGNANCY [None]
  - PREGNANCY [None]
  - THREATENED LABOUR [None]
